FAERS Safety Report 9786680 (Version 1)
Quarter: 2013Q4

REPORT INFORMATION
  Report Type: Spontaneous
  Country: US (occurrence: US)
  Receive Date: 20131227
  Receipt Date: 20131227
  Transmission Date: 20140711
  Serious: Yes (Other)
  Sender: FDA-Public Use
  Company Number: US-PFIZER INC-2013366736

PATIENT
  Age: 30 Year
  Sex: Male

DRUGS (1)
  1. XYNTHA [Suspect]
     Dosage: UNK
     Dates: start: 2007

REACTIONS (2)
  - Tongue haemorrhage [Recovered/Resolved]
  - Contusion [Recovered/Resolved]
